FAERS Safety Report 4708892-3 (Version None)
Quarter: 2005Q3

REPORT INFORMATION
  Report Type: 
  Country: None (occurrence: None)
  Receive Date: 20050707
  Receipt Date: 20050622
  Transmission Date: 20060218
  Serious: Yes (Other)
  Sender: FDA-Public Use
  Company Number: 2005091805

PATIENT
  Sex: Female
  Weight: 72.5755 kg

DRUGS (5)
  1. DETROL LA [Suspect]
     Indication: HYPERTONIC BLADDER
     Dosage: 4 MG (4 MG, 1 IN 1 D),ORAL
     Route: 048
     Dates: start: 20030101
  2. PRINIVIL [Concomitant]
  3. TIMOPTIC [Concomitant]
  4. LUMIGAN [Concomitant]
  5. CALCLIUM WITH VIATMIN D (CALCIUM PHOSPHATE, CALCIUM SODIUM LACTATE, ER [Concomitant]

REACTIONS (2)
  - CATARACT OPERATION [None]
  - NOCTURIA [None]
